FAERS Safety Report 7464701-3 (Version None)
Quarter: 2011Q2

REPORT INFORMATION
  Report Type: 
  Country: None (occurrence: None)
  Receive Date: 20110509
  Receipt Date: 20110324
  Transmission Date: 20111010
  Serious: Yes (Hospitalization)
  Sender: FDA-Public Use
  Company Number: US-BAYER-2011-020940

PATIENT
  Sex: Female
  Weight: 82 kg

DRUGS (6)
  1. YASMIN [Suspect]
     Indication: ACNE
  2. ORTHO TRI-CYCLEN [Concomitant]
     Indication: CONTRACEPTION
  3. YASMIN [Suspect]
     Indication: CONTRACEPTION
     Dosage: UNK
  4. YASMIN [Suspect]
     Indication: ENDOMETRIOSIS
  5. AVIANE-28 [Concomitant]
     Indication: CONTRACEPTION
     Dosage: UNK
  6. TRI-SPRINTEC [Concomitant]
     Indication: CONTRACEPTION
     Dosage: UNK

REACTIONS (1)
  - ABDOMINAL PAIN [None]
